FAERS Safety Report 4475728-8 (Version None)
Quarter: 2004Q4

REPORT INFORMATION
  Report Type: 
  Country: None (occurrence: None)
  Receive Date: 20041015
  Receipt Date: 20041004
  Transmission Date: 20050328
  Serious: Yes (Hospitalization)
  Sender: FDA-Public Use
  Company Number: FR-AMGEN-UK094211

PATIENT
  Age: 44 Year
  Sex: Female

DRUGS (4)
  1. NEUPOGEN [Suspect]
     Indication: CHEMOTHERAPY
     Route: 065
     Dates: start: 20040430
  2. VINCRISTINE [Concomitant]
     Dates: start: 20040423
  3. KALETRA [Concomitant]
     Route: 065
     Dates: start: 20040217
  4. VIREAD [Concomitant]
     Route: 065
     Dates: start: 20040217

REACTIONS (4)
  - ACUTE FEBRILE NEUTROPHILIC DERMATOSIS [None]
  - ARTHRALGIA [None]
  - PYREXIA [None]
  - RASH [None]
